FAERS Safety Report 24386456 (Version 1)
Quarter: 2024Q4

REPORT INFORMATION
  Report Type: Spontaneous
  Country: US (occurrence: US)
  Receive Date: 20241002
  Receipt Date: 20241002
  Transmission Date: 20250115
  Serious: No
  Sender: ROCHE
  Company Number: US-ROCHE-10000090224

PATIENT
  Age: 12 Year
  Sex: Male

DRUGS (2)
  1. NUTROPIN AQ NUSPIN 10 [Suspect]
     Active Substance: SOMATROPIN
     Indication: Product used for unknown indication
     Dosage: ALTERNATING DOSING
     Route: 058
  2. NUTROPIN AQ NUSPIN 10 [Suspect]
     Active Substance: SOMATROPIN
     Dosage: ALTERNATING DOSING
     Route: 058

REACTIONS (2)
  - Product dose omission issue [Unknown]
  - Memory impairment [Unknown]
